FAERS Safety Report 4532934-1 (Version None)
Quarter: 2005Q1

REPORT INFORMATION
  Report Type: 
  Country: None (occurrence: None)
  Receive Date: 20041206
  Receipt Date: 20041027
  Transmission Date: 20050727
  Serious: No
  Sender: FDA-Public Use
  Company Number: USA041082380

PATIENT
  Age: 73 Year
  Sex: Female

DRUGS (8)
  1. CYMBALTA [Suspect]
     Indication: NEUROPATHY
     Dosage: 30 MG DAY
     Dates: start: 20041019
  2. THEOPHYLLINE [Concomitant]
  3. ADVAIR DISKUS 100/50 [Concomitant]
  4. ALBUTEROL [Concomitant]
  5. ATROVENT [Concomitant]
  6. PREMARIN [Concomitant]
  7. ZANTAC [Concomitant]
  8. VALIUM [Concomitant]

REACTIONS (1)
  - TREMOR [None]
